FAERS Safety Report 8252330-3 (Version None)
Quarter: 2012Q2

REPORT INFORMATION
  Report Type: 
  Country: None (occurrence: None)
  Receive Date: 20120402
  Receipt Date: 20110601
  Transmission Date: 20120825
  Serious: No
  Sender: FDA-Public Use
  Company Number: US-ABBOTT-11P-163-0804555-00

PATIENT
  Sex: Male

DRUGS (3)
  1. TESTOSTERONE [Suspect]
     Indication: PRODUCT USED FOR UNKNOWN INDICATION
     Dosage: DAILY DOSE:  UNKNOWN
     Route: 062
     Dates: end: 20101101
  2. TESTOSTERONE [Suspect]
     Dosage: DAILY DOSE:  UNKNOWN
     Route: 062
     Dates: start: 20110101
  3. TESTOSTERONE [Suspect]
     Dosage: DAILY DOSE:  UNKNOWN
     Route: 062
     Dates: start: 20101101, end: 20110101

REACTIONS (1)
  - DRUG INEFFECTIVE [None]
